FAERS Safety Report 9697618 (Version 2)
Quarter: 2013Q4

REPORT INFORMATION
  Report Type: Spontaneous
  Country: JP (occurrence: JP)
  Receive Date: 20131120
  Receipt Date: 20131120
  Transmission Date: 20140711
  Serious: Yes (Hospitalization, Other)
  Sender: FDA-Public Use
  Company Number: JP-ASTELLAS-2013JP010316

PATIENT
  Age: 40 Year
  Sex: Female
  Weight: 37 kg

DRUGS (5)
  1. PROGRAF [Suspect]
     Indication: IMMUNOSUPPRESSANT DRUG THERAPY
     Dosage: 3 MG, BID
     Route: 048
     Dates: start: 20080914
  2. GASTER [Suspect]
     Indication: GASTRITIS
     Dosage: 10 MG, BID
     Route: 048
     Dates: start: 20090110
  3. IMURAN                             /00001501/ [Concomitant]
     Indication: IMMUNOSUPPRESSANT DRUG THERAPY
     Dosage: 25 MG, BID
     Route: 048
     Dates: start: 20100823
  4. MEDROL                             /00049601/ [Concomitant]
     Indication: IMMUNOSUPPRESSANT DRUG THERAPY
     Dosage: 4 MG, UID/QD
     Route: 048
     Dates: start: 20080914
  5. CELLCEPT                           /01275102/ [Concomitant]
     Dosage: UNK
     Route: 048
     Dates: end: 20100822

REACTIONS (2)
  - Exposure during pregnancy [Unknown]
  - Gestational hypertension [Recovered/Resolved]
